FAERS Safety Report 25213391 (Version 1)
Quarter: 2025Q2

REPORT INFORMATION
  Report Type: Spontaneous
  Country: US (occurrence: US)
  Receive Date: 20250418
  Receipt Date: 20250418
  Transmission Date: 20250716
  Serious: Yes (Other)
  Sender: MYLAN
  Company Number: US-MYLANLABS-2025M1033523

PATIENT
  Age: 53 Year
  Sex: Female

DRUGS (15)
  1. DOCETAXEL [Suspect]
     Active Substance: DOCETAXEL
     Indication: Invasive ductal breast carcinoma
     Dosage: 75 MILLIGRAM/SQ. METER (INFUSION, EVERY 3 WEEKS TO COMPLETE 6 CYCLES/PART OF TCHP REGIMEN)
  2. DOCETAXEL [Suspect]
     Active Substance: DOCETAXEL
     Indication: Hormone receptor positive breast cancer
  3. DOCETAXEL [Suspect]
     Active Substance: DOCETAXEL
     Indication: HER2 positive breast cancer
  4. CARBOPLATIN [Suspect]
     Active Substance: CARBOPLATIN
     Indication: Hormone receptor positive breast cancer
  5. CARBOPLATIN [Suspect]
     Active Substance: CARBOPLATIN
     Indication: HER2 positive breast cancer
  6. CARBOPLATIN [Suspect]
     Active Substance: CARBOPLATIN
     Indication: Invasive ductal breast carcinoma
  7. TRASTUZUMAB [Suspect]
     Active Substance: TRASTUZUMAB
     Indication: Hormone receptor positive breast cancer
     Dosage: 8 MILLIGRAM/KILOGRAM, Q3W, (LOADING DOSE, EVERY 3 WEEKS INFUSION, PLANNED TO COMPLETE 6 CYCLES....
  8. TRASTUZUMAB [Suspect]
     Active Substance: TRASTUZUMAB
     Indication: HER2 positive breast cancer
     Dosage: 6 MILLIGRAM/KILOGRAM, Q3W,  (EVERY 3 WEEKS INFUSION, PLANNED TO COMPLETE 6 CYCLES)
  9. TRASTUZUMAB [Suspect]
     Active Substance: TRASTUZUMAB
     Indication: Invasive ductal breast carcinoma
  10. PERTUZUMAB [Suspect]
     Active Substance: PERTUZUMAB
     Indication: Hormone receptor positive breast cancer
     Dosage: 840 MILLIGRAM, Q3W,  (LOADING DOSE, EVERY 3 WEEKS INFUSION, PLANNED TO COMPLETE 6 CYCLES....
  11. PERTUZUMAB [Suspect]
     Active Substance: PERTUZUMAB
     Indication: HER2 positive breast cancer
     Dosage: 420 MILLIGRAM, Q3W, (EVERY 3 WEEKS INFUSION, PLANNED TO COMPLETE 6 CYCLES)
  12. PERTUZUMAB [Suspect]
     Active Substance: PERTUZUMAB
     Indication: Invasive ductal breast carcinoma
  13. APREPITANT [Concomitant]
     Active Substance: APREPITANT
     Indication: Premedication
  14. DEXAMETHASONE [Concomitant]
     Active Substance: DEXAMETHASONE
     Indication: Premedication
  15. PALONOSETRON [Concomitant]
     Active Substance: PALONOSETRON
     Indication: Premedication

REACTIONS (1)
  - Cystitis haemorrhagic [Recovered/Resolved]
